FAERS Safety Report 8582676-0 (Version None)
Quarter: 2012Q3

REPORT INFORMATION
  Report Type: 
  Country: None (occurrence: None)
  Receive Date: 20120809
  Receipt Date: 20120705
  Transmission Date: 20120928
  Serious: No
  Sender: FDA-Public Use
  Company Number: US-ASTRAZENECA-2011SE21024

PATIENT
  Age: 29 Year
  Sex: Male

DRUGS (3)
  1. SEROQUEL [Suspect]
     Indication: BIPOLAR DISORDER
     Route: 048
  2. CRESTOR [Suspect]
     Route: 048
  3. 32 PILLS [Concomitant]

REACTIONS (9)
  - BIPOLAR DISORDER [None]
  - HEART RATE INCREASED [None]
  - TREMOR [None]
  - MALAISE [None]
  - PALPITATIONS [None]
  - HYPERHIDROSIS [None]
  - DRUG INEFFECTIVE [None]
  - SYNCOPE [None]
  - DIZZINESS [None]
